FAERS Safety Report 4771267-5 (Version None)
Quarter: 2005Q3

REPORT INFORMATION
  Report Type: 
  Country: None (occurrence: None)
  Receive Date: 20050914
  Receipt Date: 20050826
  Transmission Date: 20060218
  Serious: Yes (Hospitalization, Other)
  Sender: FDA-Public Use
  Company Number: USA0508106496

PATIENT
  Age: 79 Year
  Sex: Male
  Weight: 65 kg

DRUGS (2)
  1. HUMULIN N [Suspect]
     Indication: DIABETES MELLITUS
     Dates: start: 19820101
  2. INSULINE NOVO NORDISK (INSULIN HUMAN) [Concomitant]

REACTIONS (13)
  - ARTERIAL OCCLUSIVE DISEASE [None]
  - BLOOD GLUCOSE ABNORMAL [None]
  - CELLULITIS [None]
  - CONFUSIONAL STATE [None]
  - IMPAIRED HEALING [None]
  - MENTAL DISORDER [None]
  - NECROTISING FASCIITIS [None]
  - PHARMACEUTICAL PRODUCT COMPLAINT [None]
  - POST PROCEDURAL COMPLICATION [None]
  - POSTOPERATIVE INFECTION [None]
  - SCROTAL HAEMATOCOELE [None]
  - SKIN ULCER [None]
  - TOE AMPUTATION [None]
